FAERS Safety Report 9146771 (Version 1)
Quarter: 2013Q1

REPORT INFORMATION
  Report Type: Spontaneous
  Country: US (occurrence: US)
  Receive Date: 20130307
  Receipt Date: 20130307
  Transmission Date: 20140127
  Serious: No
  Sender: FDA-Public Use
  Company Number: US-009507513-1303USA002225

PATIENT
  Age: 66 Year
  Sex: Male

DRUGS (5)
  1. FOSAMAX [Suspect]
     Dosage: UNK
  2. ALENDRONIC ACID [Suspect]
     Indication: OSTEOPOROSIS
     Dosage: 70 MG, UNK
     Route: 048
     Dates: start: 20121204
  3. SINEMET [Concomitant]
  4. PLAVIX [Concomitant]
  5. CARDIZEM [Concomitant]

REACTIONS (1)
  - Abdominal pain [Recovered/Resolved]
